FAERS Safety Report 9285396 (Version 1)
Quarter: 2013Q2

REPORT INFORMATION
  Report Type: Spontaneous
  Country: US (occurrence: US)
  Receive Date: 20130513
  Receipt Date: 20130513
  Transmission Date: 20140414
  Serious: No
  Sender: FDA-Public Use
  Company Number: US-PFIZER INC-2013146847

PATIENT
  Sex: Male

DRUGS (6)
  1. CHANTIX [Suspect]
     Indication: SMOKING CESSATION THERAPY
     Dosage: UNK
  2. CHANTIX [Suspect]
     Dosage: UNK
  3. NICORETTE [Suspect]
     Indication: SMOKING CESSATION THERAPY
     Dosage: UNK
  4. ADDERALL [Concomitant]
     Dosage: UNK
  5. REMICADE [Concomitant]
     Dosage: UNK
  6. VALIUM [Concomitant]
     Dosage: UNK

REACTIONS (3)
  - Depression [Unknown]
  - Nausea [Unknown]
  - Drug ineffective [Unknown]
